FAERS Safety Report 8256082-2 (Version None)
Quarter: 2012Q2

REPORT INFORMATION
  Report Type: 
  Country: None (occurrence: None)
  Receive Date: 20120403
  Receipt Date: 20120327
  Transmission Date: 20120825
  Serious: Yes (Death, Life-Threatening, Other)
  Sender: FDA-Public Use
  Company Number: JP-PFIZER INC-2012041177

PATIENT
  Age: 72 Year
  Sex: Male
  Weight: 60 kg

DRUGS (9)
  1. ATRACURIUM BESYLATE [Suspect]
     Indication: ACUTE PROMYELOCYTIC LEUKAEMIA
     Dosage: 45 MG/M2, UNK
  2. TARGOCID [Concomitant]
     Dosage: 400 MG, 1X/DAY
     Route: 041
     Dates: start: 20100907, end: 20100910
  3. DECADRON [Concomitant]
     Indication: PROPHYLAXIS
     Dosage: 20 MG /DAY
     Dates: start: 20100828
  4. INSULIN [Concomitant]
     Indication: DIABETES MELLITUS
  5. DIFLUCAN [Concomitant]
     Dosage: 200 MG, 1X/DAY
     Route: 048
     Dates: start: 20100828, end: 20100910
  6. IDARUBICIN HCL [Suspect]
     Indication: ACUTE PROMYELOCYTIC LEUKAEMIA
     Dosage: 19 MG DAY 2, 4, 6, 8
     Route: 041
     Dates: start: 20100829, end: 20100904
  7. VESANOID [Concomitant]
     Dosage: 70 MG, 1X/DAY
     Route: 048
     Dates: start: 20100828
  8. CIPROFLOXACIN [Concomitant]
     Dosage: 300 MG, 3X/DAY
     Route: 048
     Dates: start: 20100828, end: 20100901
  9. ZOSYN [Concomitant]
     Dosage: 13.5 G, 3X/DAY
     Route: 041
     Dates: start: 20100829, end: 20100909

REACTIONS (3)
  - ZYGOMYCOSIS [None]
  - PNEUMONIA [None]
  - NEUTROPHIL COUNT DECREASED [None]
